FAERS Safety Report 11393179 (Version 2)
Quarter: 2015Q4

REPORT INFORMATION
  Report Type: Spontaneous
  Country: US (occurrence: US)
  Receive Date: 20150818
  Receipt Date: 20151026
  Transmission Date: 20160304
  Serious: Yes (Hospitalization)
  Sender: FDA-Public Use
  Company Number: US-UCBSA-2015026153

PATIENT
  Age: 83 Year
  Sex: Male
  Weight: 165 kg

DRUGS (1)
  1. VIMPAT [Suspect]
     Active Substance: LACOSAMIDE
     Indication: SEIZURE
     Dosage: UNK
     Dates: start: 201505

REACTIONS (1)
  - Hip surgery [Not Recovered/Not Resolved]

NARRATIVE: CASE EVENT DATE: 20150810
